FAERS Safety Report 4376168-2 (Version None)
Quarter: 2004Q2

REPORT INFORMATION
  Report Type: 
  Country: None (occurrence: None)
  Receive Date: 20040607
  Receipt Date: 20040526
  Transmission Date: 20050107
  Serious: Yes (Hospitalization)
  Sender: FDA-Public Use
  Company Number: 04P-056-0262192-00

PATIENT
  Age: 62 Year
  Sex: Female

DRUGS (7)
  1. TRICOR [Suspect]
     Indication: LIPID METABOLISM DISORDER
     Dosage: 300 MG, 1 IN 1 D, ORAL
     Route: 048
  2. GLICLAZIDE (GLICLAZIDE) [Suspect]
  3. FLUINDIONE (FLUINDIONE) [Suspect]
     Dosage: 20 MG
     Dates: start: 19920101
  4. METFORMIN EMBONATE (METFORMIN EMBONATE) [Suspect]
  5. AMIODARONE HYDROCHLORIDE [Concomitant]
  6. FLECAINIDE ACETATE [Concomitant]
  7. VEINOTONYL [Concomitant]

REACTIONS (4)
  - DRUG INTERACTION [None]
  - FALL [None]
  - HAEMATOMA [None]
  - SKIN NECROSIS [None]
